FAERS Safety Report 14436405 (Version 1)
Quarter: 2018Q1

REPORT INFORMATION
  Report Type: Spontaneous
  Country: US (occurrence: US)
  Receive Date: 20180123
  Receipt Date: 20180123
  Transmission Date: 20180509
  Serious: Yes (Other)
  Sender: FDA-Public Use
  Company Number: None

PATIENT
  Age: 62 Year
  Sex: Female
  Weight: 65.77 kg

DRUGS (3)
  1. DESVENLAFAXINE SUCCINATE TAB ER [Suspect]
     Active Substance: DESVENLAFAXINE SUCCINATE
     Indication: GENERALISED ANXIETY DISORDER
     Route: 048
     Dates: start: 201711, end: 201801
  2. DESVENLAFAXINE SUCCINATE TAB ER [Suspect]
     Active Substance: DESVENLAFAXINE SUCCINATE
     Indication: STRESS
     Route: 048
     Dates: start: 201711, end: 201801
  3. DESVENLAFAXINE SUCCINATE TAB ER [Suspect]
     Active Substance: DESVENLAFAXINE SUCCINATE
     Indication: DEPRESSION
     Route: 048
     Dates: start: 201711, end: 201801

REACTIONS (9)
  - Anger [None]
  - Anxiety [None]
  - Product substitution issue [None]
  - Panic attack [None]
  - Therapeutic response changed [None]
  - Fear [None]
  - Crying [None]
  - Condition aggravated [None]
  - Mental impairment [None]

NARRATIVE: CASE EVENT DATE: 20180110
